FAERS Safety Report 5210673-1 (Version None)
Quarter: 2007Q1

REPORT INFORMATION
  Report Type: 
  Country: None (occurrence: None)
  Receive Date: 20070117
  Receipt Date: 20070116
  Transmission Date: 20070707
  Serious: Yes (Hospitalization)
  Sender: FDA-Public Use
  Company Number: 20060905815

PATIENT
  Sex: Female

DRUGS (6)
  1. IMITREX [Suspect]
  2. COMPAZINE [Suspect]
  3. DURAGESIC-100 [Suspect]
     Indication: PAIN
     Dates: end: 20050718
  4. MECLIZINE [Suspect]
  5. LOPERAMIDE HCL [Suspect]
  6. DARVOCET [Suspect]

REACTIONS (2)
  - DRUG EXPOSURE DURING PREGNANCY [None]
  - DRUG WITHDRAWAL SYNDROME [None]
